FAERS Safety Report 8280556-1 (Version None)
Quarter: 2012Q2

REPORT INFORMATION
  Report Type: 
  Country: None (occurrence: None)
  Receive Date: 20120412
  Receipt Date: 20111006
  Transmission Date: 20120825
  Serious: No
  Sender: FDA-Public Use
  Company Number: US-ASTRAZENECA-2011SE59087

PATIENT
  Age: 60 Year
  Sex: Female
  Weight: 79.4 kg

DRUGS (4)
  1. FLUOXETINE [Concomitant]
     Indication: DEPRESSION
  2. NEXIUM [Suspect]
     Indication: GASTROOESOPHAGEAL REFLUX DISEASE
     Route: 048
  3. LIPITOR [Concomitant]
  4. LISINOPRIL [Concomitant]

REACTIONS (3)
  - DEPRESSION [None]
  - FEELING ABNORMAL [None]
  - DRUG DOSE OMISSION [None]
